FAERS Safety Report 9875104 (Version 1)
Quarter: 2014Q1

REPORT INFORMATION
  Report Type: Other
  Country: US (occurrence: US)
  Receive Date: 20140206
  Receipt Date: 20140206
  Transmission Date: 20141002
  Serious: No
  Sender: FDA-Public Use
  Company Number: US-ACORDA-ACO_35493_2013

PATIENT
  Age: 62 Year
  Sex: Female
  Weight: 67.57 kg

DRUGS (7)
  1. AMPYRA [Suspect]
     Indication: MUSCULOSKELETAL STIFFNESS
     Dosage: 10 MG, BID
     Route: 048
     Dates: start: 201303
  2. AMPYRA [Suspect]
     Indication: GAIT DISTURBANCE
  3. COPAXONE [Concomitant]
     Indication: PRODUCT USED FOR UNKNOWN INDICATION
     Dosage: UNK
  4. ANTIHYPERTENSIVES [Concomitant]
     Indication: HYPERTENSION
     Dosage: UNK
  5. OMEPRAZOLE [Concomitant]
     Indication: PRODUCT USED FOR UNKNOWN INDICATION
     Dosage: UNK
  6. ALL OTHER THERAPEUTIC PRODUCTS [Concomitant]
     Indication: BLOOD CHOLESTEROL INCREASED
     Dosage: UNK
  7. ALL OTHER THERAPEUTIC PRODUCTS [Concomitant]
     Indication: THYROID DISORDER

REACTIONS (3)
  - Musculoskeletal stiffness [Not Recovered/Not Resolved]
  - Pain in extremity [Not Recovered/Not Resolved]
  - Gait disturbance [Not Recovered/Not Resolved]
